FAERS Safety Report 6379974-8 (Version None)
Quarter: 2009Q3

REPORT INFORMATION
  Report Type: 
  Country: None (occurrence: None)
  Receive Date: 20090923
  Receipt Date: 20090909
  Transmission Date: 20100115
  Serious: Yes (Hospitalization, Other)
  Sender: FDA-Public Use
  Company Number: ENT 2009-0138

PATIENT
  Age: 73 Year
  Sex: Female

DRUGS (24)
  1. COMTAN [Suspect]
     Indication: PARKINSON'S DISEASE
     Dosage: 300 MG ORAL ; 400 MG ORAL
     Route: 048
     Dates: start: 20080616, end: 20080911
  2. COMTAN [Suspect]
     Indication: PARKINSON'S DISEASE
     Dosage: 300 MG ORAL ; 400 MG ORAL
     Route: 048
     Dates: start: 20080912
  3. CARBIDOPA AND LEVODOPA [Suspect]
     Indication: PARKINSON'S DISEASE
     Dosage: 300 MG ORAL ; 400 MG ORAL
     Route: 048
     Dates: start: 20080702, end: 20080911
  4. CARBIDOPA AND LEVODOPA [Suspect]
     Indication: PARKINSON'S DISEASE
     Dosage: 300 MG ORAL ; 400 MG ORAL
     Route: 048
     Dates: start: 20080912
  5. REQUIP [Suspect]
     Indication: PARKINSON'S DISEASE
     Dosage: 0.75 MG ORAL ; 2 MG ORAL ; 3 MG ORAL ; 6 MG ORAL ; 3 MG ORAL ; 5 MG ORAL
     Route: 048
     Dates: start: 20080702, end: 20080704
  6. REQUIP [Suspect]
     Indication: PARKINSON'S DISEASE
     Dosage: 0.75 MG ORAL ; 2 MG ORAL ; 3 MG ORAL ; 6 MG ORAL ; 3 MG ORAL ; 5 MG ORAL
     Route: 048
     Dates: start: 20080705, end: 20080707
  7. REQUIP [Suspect]
     Indication: PARKINSON'S DISEASE
     Dosage: 0.75 MG ORAL ; 2 MG ORAL ; 3 MG ORAL ; 6 MG ORAL ; 3 MG ORAL ; 5 MG ORAL
     Route: 048
     Dates: start: 20080708, end: 20080710
  8. REQUIP [Suspect]
     Indication: PARKINSON'S DISEASE
     Dosage: 0.75 MG ORAL ; 2 MG ORAL ; 3 MG ORAL ; 6 MG ORAL ; 3 MG ORAL ; 5 MG ORAL
     Route: 048
     Dates: start: 20080711, end: 20080801
  9. REQUIP [Suspect]
     Indication: PARKINSON'S DISEASE
     Dosage: 0.75 MG ORAL ; 2 MG ORAL ; 3 MG ORAL ; 6 MG ORAL ; 3 MG ORAL ; 5 MG ORAL
     Route: 048
     Dates: start: 20080802, end: 20080817
  10. REQUIP [Suspect]
     Indication: PARKINSON'S DISEASE
     Dosage: 0.75 MG ORAL ; 2 MG ORAL ; 3 MG ORAL ; 6 MG ORAL ; 3 MG ORAL ; 5 MG ORAL
     Route: 048
     Dates: start: 20080818
  11. RISPERDAL [Suspect]
     Indication: ANXIETY DISORDER
     Dosage: 1 MG
     Dates: start: 20080811, end: 20090110
  12. ARTANE [Concomitant]
  13. SYMMETREL [Concomitant]
  14. BENET [Concomitant]
  15. ALOSENN [Concomitant]
  16. CIBACEN [Concomitant]
  17. RINLAXER [Concomitant]
  18. ALUSA [Concomitant]
  19. LORCAM [Concomitant]
  20. RIVOTRIL [Concomitant]
  21. ALMARL [Concomitant]
  22. FERROMIA [Concomitant]
  23. SENNOSIDE [Concomitant]
  24. CARBIDOPA AND LEVODOPA [Concomitant]

REACTIONS (5)
  - DELUSION [None]
  - DRUG INEFFECTIVE [None]
  - DYSKINESIA [None]
  - HALLUCINATION [None]
  - MOVEMENT DISORDER [None]
